FAERS Safety Report 8895871 (Version 2)
Quarter: 2012Q4

REPORT INFORMATION
  Report Type: 
  Country: DE (occurrence: CA)
  Receive Date: 20121108
  Receipt Date: 20121119
  Transmission Date: 20130627
  Serious: Yes (Hospitalization)
  Sender: FDA-Public Use
  Company Number: CA-FRI-1000040226

PATIENT
  Age: 76 None
  Sex: Male

DRUGS (7)
  1. ROFLUMILAST [Suspect]
     Dosage: 500 mcg
     Dates: start: 20120605, end: 20120727
  2. ROFLUMILAST [Suspect]
     Dosage: 500 mcg
     Dates: start: 20120814
  3. SYMBICORT [Concomitant]
  4. FUROSEMIDE [Concomitant]
  5. PREDNISONE [Concomitant]
  6. SALBUTAMOL [Concomitant]
  7. ATROVENT [Concomitant]

REACTIONS (3)
  - Chronic obstructive pulmonary disease [Recovered/Resolved]
  - Mobility decreased [Recovered/Resolved]
  - Decreased appetite [Recovered/Resolved]
